FAERS Safety Report 19786108 (Version 1)
Quarter: 2021Q3

REPORT INFORMATION
  Report Type: Spontaneous
  Country: JP (occurrence: JP)
  Receive Date: 20210903
  Receipt Date: 20210903
  Transmission Date: 20211014
  Serious: Yes (Death)
  Sender: FDA-Public Use
  Company Number: JP-BAYER-2021-204555

PATIENT
  Sex: Male

DRUGS (1)
  1. JIVI [Suspect]
     Active Substance: DAMOCTOCOG ALFA PEGOL
     Indication: FACTOR VIII DEFICIENCY
     Dosage: 2000 IU ON?DEMAND ADMINISTRATION
     Dates: start: 202012

REACTIONS (1)
  - Death [Fatal]
